FAERS Safety Report 19581188 (Version 3)
Quarter: 2021Q4

REPORT INFORMATION
  Report Type: Report from Study
  Country: ES (occurrence: ES)
  Receive Date: 20210719
  Receipt Date: 20211130
  Transmission Date: 20220303
  Serious: Yes (Hospitalization, Other)
  Sender: FDA-Public Use
  Company Number: ES-SHIRE-ES202022362

PATIENT
  Age: 52 Year
  Sex: Male

DRUGS (8)
  1. TEDUGLUTIDE [Suspect]
     Active Substance: TEDUGLUTIDE
     Indication: Short-bowel syndrome
     Dosage: 3.6 MILLIGRAM
     Route: 065
     Dates: start: 20190130, end: 20210127
  2. TEDUGLUTIDE [Suspect]
     Active Substance: TEDUGLUTIDE
     Indication: Short-bowel syndrome
     Dosage: 3.6 MILLIGRAM
     Route: 065
     Dates: start: 20190130, end: 20210127
  3. TEDUGLUTIDE [Suspect]
     Active Substance: TEDUGLUTIDE
     Indication: Short-bowel syndrome
     Dosage: 3.6 MILLIGRAM
     Route: 065
     Dates: start: 20190130, end: 20210127
  4. TEDUGLUTIDE [Suspect]
     Active Substance: TEDUGLUTIDE
     Indication: Short-bowel syndrome
     Dosage: 3.6 MILLIGRAM
     Route: 065
     Dates: start: 20190130, end: 20210127
  5. CYANOCOBALAMIN [Concomitant]
     Active Substance: CYANOCOBALAMIN
     Indication: Vitamin B12 deficiency
     Dosage: 1 AMPS, ONCE MONTHLY
     Route: 030
     Dates: start: 20190919
  6. ASPIRIN [Concomitant]
     Active Substance: ASPIRIN
     Indication: Trombidiasis
     Dosage: 100 MILLIGRAM, QD
     Route: 048
     Dates: start: 20190226
  7. CHOLECALCIFEROL [Concomitant]
     Active Substance: CHOLECALCIFEROL
     Indication: Vitamin D deficiency
     Dosage: 25000 INTERNATIONAL UNIT, 1/WEEK
     Route: 048
     Dates: start: 20201111
  8. CLAVULANIC ACID [Concomitant]
     Active Substance: CLAVULANIC ACID
     Indication: Cholangitis acute
     Dosage: 875 MILLIGRAM, TID
     Route: 048
     Dates: start: 20200625

REACTIONS (3)
  - Cholangitis acute [Recovered/Resolved]
  - Asymptomatic COVID-19 [Recovered/Resolved]
  - Large intestine polyp [Recovered/Resolved]

NARRATIVE: CASE EVENT DATE: 20200620
